FAERS Safety Report 7225539-5 (Version None)
Quarter: 2011Q1

REPORT INFORMATION
  Report Type: 
  Country: None (occurrence: None)
  Receive Date: 20110113
  Receipt Date: 20101224
  Transmission Date: 20110831
  Serious: No
  Sender: FDA-Public Use
  Company Number: US-B.I. PHARMACEUTICALS,INC./RIDGEFIELD-2011-BP-00133BP

PATIENT
  Sex: Female

DRUGS (1)
  1. PRADAXA [Suspect]
     Dosage: 300 MG
     Dates: start: 20101221

REACTIONS (1)
  - SKIN DISCOLOURATION [None]
